FAERS Safety Report 5099625-2 (Version None)
Quarter: 2006Q3

REPORT INFORMATION
  Report Type: 
  Country: None (occurrence: None)
  Receive Date: 20060906
  Receipt Date: 20060823
  Transmission Date: 20061208
  Serious: Yes (Hospitalization)
  Sender: FDA-Public Use
  Company Number: 235529K06USA

PATIENT
  Age: 25 Year
  Sex: Female

DRUGS (1)
  1. REBIF [Suspect]
     Indication: MULTIPLE SCLEROSIS
     Dosage: 44 MCG, 3 IN 1 WEEKS,  SUBCUTANEOUS
     Route: 058
     Dates: start: 20050822

REACTIONS (8)
  - ADRENAL NEOPLASM [None]
  - CATECHOLAMINES URINE ABNORMAL [None]
  - CHOLECYSTITIS [None]
  - CHOLELITHIASIS OBSTRUCTIVE [None]
  - HYPERTENSION [None]
  - METANEPHRINE URINE ABNORMAL [None]
  - NORMETANEPHRINE URINE INCREASED [None]
  - URINE ANALYSIS ABNORMAL [None]
